FAERS Safety Report 11934407 (Version 1)
Quarter: 2016Q1

REPORT INFORMATION
  Report Type: Spontaneous
  Country: US (occurrence: US)
  Receive Date: 20160121
  Receipt Date: 20160121
  Transmission Date: 20160526
  Serious: No
  Sender: FDA-Public Use
  Company Number: US-PERRIGO-15US009763

PATIENT
  Age: 27 Year
  Sex: Female

DRUGS (1)
  1. ACETAMINOPHEN-ASPIRIN-CAFFEINE 6X0 [Suspect]
     Active Substance: ACETAMINOPHEN\ASPIRIN\CAFFEINE
     Indication: TOOTHACHE
     Dosage: 2 TABLETS, SINGLE
     Route: 048
     Dates: start: 20150910, end: 20150910

REACTIONS (3)
  - Hepatic pain [Unknown]
  - Dizziness [Unknown]
  - Dyspnoea [Unknown]

NARRATIVE: CASE EVENT DATE: 20150910
